FAERS Safety Report 9862957 (Version 1)
Quarter: 2014Q1

REPORT INFORMATION
  Report Type: Report from Study
  Country: US (occurrence: US)
  Receive Date: 20140203
  Receipt Date: 20140203
  Transmission Date: 20141002
  Serious: Yes (Other)
  Sender: FDA-Public Use
  Company Number: US-ROCHE-1341144

PATIENT
  Age: 10 Year
  Sex: Female
  Weight: 49 kg

DRUGS (5)
  1. NUTROPIN AQ [Suspect]
     Indication: GROWTH HORMONE DEFICIENCY
     Route: 058
  2. LUPRON DEPOT [Concomitant]
     Route: 030
  3. SYNTHROID [Concomitant]
     Route: 048
  4. HYDROCORTISONE [Concomitant]
     Dosage: AM
     Route: 065
  5. HYDROCORTISONE [Concomitant]
     Dosage: PM
     Route: 065

REACTIONS (6)
  - Ear infection [Unknown]
  - Mood swings [Unknown]
  - Nasal congestion [Unknown]
  - Cough [Unknown]
  - Increased appetite [Unknown]
  - Haemorrhage [Unknown]
